FAERS Safety Report 15538594 (Version 2)
Quarter: 2018Q4

REPORT INFORMATION
  Report Type: Spontaneous
  Country: US (occurrence: US)
  Receive Date: 20181022
  Receipt Date: 20181026
  Transmission Date: 20190205
  Serious: Yes (Life-Threatening, Other)
  Sender: FDA-Public Use
  Company Number: US-OTSUKA-2017_020044

PATIENT
  Age: 53 Year
  Sex: Female

DRUGS (3)
  1. TRAZODONE [Suspect]
     Active Substance: TRAZODONE HYDROCHLORIDE
     Indication: PRODUCT USED FOR UNKNOWN INDICATION
     Dosage: 0.5/ HALF TABLET, QD (BEDTIME)
     Route: 048
     Dates: start: 20161115, end: 20170321
  2. PROZAC [Suspect]
     Active Substance: FLUOXETINE HYDROCHLORIDE
     Indication: PRODUCT USED FOR UNKNOWN INDICATION
     Dosage: 10 MG, QD (AM)
     Route: 065
     Dates: start: 20150922
  3. ABILIFY [Suspect]
     Active Substance: ARIPIPRAZOLE
     Indication: BIPOLAR DISORDER
     Dosage: 5 MG, BID
     Route: 065
     Dates: start: 20060103, end: 200912

REACTIONS (20)
  - Brain neoplasm [Unknown]
  - Poor quality sleep [Unknown]
  - Disturbance in attention [Unknown]
  - Injury [Unknown]
  - Emotional distress [Unknown]
  - Headache [Unknown]
  - Inappropriate schedule of product administration [Unknown]
  - Mental disorder [Unknown]
  - Gambling disorder [Recovered/Resolved]
  - Anxiety [Unknown]
  - Affective disorder [Unknown]
  - Depression [Unknown]
  - Atrial fibrillation [Unknown]
  - Stress [Unknown]
  - Obsessive-compulsive disorder [Unknown]
  - Hypothyroidism [Unknown]
  - Mood swings [Unknown]
  - Compulsive shopping [Unknown]
  - Condition aggravated [Recovered/Resolved]
  - Economic problem [Unknown]

NARRATIVE: CASE EVENT DATE: 200602
